FAERS Safety Report 4401813-2 (Version None)
Quarter: 2004Q3

REPORT INFORMATION
  Report Type: 
  Country: None (occurrence: None)
  Receive Date: 20040714
  Receipt Date: 20040629
  Transmission Date: 20050211
  Serious: Yes (Death)
  Sender: FDA-Public Use
  Company Number: 04P-163-0265138-00

PATIENT
  Age: 86 Year
  Sex: Male

DRUGS (1)
  1. ZEMPLAR [Suspect]
     Dates: start: 20020101, end: 20020101

REACTIONS (2)
  - BLOOD PARATHYROID HORMONE DECREASED [None]
  - LOW TURNOVER OSTEOPATHY [None]
